FAERS Safety Report 8422591-6 (Version None)
Quarter: 2012Q2

REPORT INFORMATION
  Report Type: 
  Country: None (occurrence: None)
  Receive Date: 20120608
  Receipt Date: 20120530
  Transmission Date: 20120825
  Serious: Yes (Other)
  Sender: FDA-Public Use
  Company Number: US-ABBOTT-12P-163-0930347-00

PATIENT
  Sex: Male
  Weight: 110 kg

DRUGS (6)
  1. ENTOCORT EC [Concomitant]
     Indication: CROHN'S DISEASE
     Dosage: 9 MG DAILY
  2. MULTI-VITAMIN [Concomitant]
     Indication: PRODUCT USED FOR UNKNOWN INDICATION
  3. HUMIRA [Suspect]
  4. HUMIRA [Suspect]
     Indication: CROHN'S DISEASE
     Dates: start: 20120330, end: 20120330
  5. HUMIRA [Suspect]
     Dates: start: 20120413, end: 20120413
  6. FISH OIL [Concomitant]
     Indication: PRODUCT USED FOR UNKNOWN INDICATION

REACTIONS (6)
  - FATIGUE [None]
  - ASTHENIA [None]
  - NASOPHARYNGITIS [None]
  - THROAT TIGHTNESS [None]
  - THROAT IRRITATION [None]
  - FEELING HOT [None]
